FAERS Safety Report 5290542-1 (Version None)
Quarter: 2007Q2

REPORT INFORMATION
  Report Type: 
  Country: None (occurrence: None)
  Receive Date: 20070405
  Receipt Date: 20070405
  Transmission Date: 20071010
  Serious: Yes (Hospitalization)
  Sender: FDA-Public Use
  Company Number: None

PATIENT
  Sex: Male
  Weight: 73.6 kg

DRUGS (1)
  1. PEG-INTRON [Suspect]
     Dosage: 73.18 MG

REACTIONS (4)
  - ANAEMIA [None]
  - ENTEROSTOMY [None]
  - POSTOPERATIVE WOUND COMPLICATION [None]
  - WOUND DRAINAGE [None]
